FAERS Safety Report 25377882 (Version 2)
Quarter: 2025Q2

REPORT INFORMATION
  Report Type: Spontaneous
  Country: US (occurrence: US)
  Receive Date: 20250530
  Receipt Date: 20250618
  Transmission Date: 20250717
  Serious: No
  Sender: BIOVITRUM
  Company Number: US-BIOVITRUM-2025-US-007305

PATIENT
  Age: 81 Year
  Sex: Female

DRUGS (3)
  1. VONJO [Suspect]
     Active Substance: PACRITINIB
     Indication: Chronic myeloid leukaemia
     Route: 048
     Dates: start: 20250513
  2. VONJO [Suspect]
     Active Substance: PACRITINIB
     Indication: Polycythaemia vera
  3. SPRYCEL [Interacting]
     Active Substance: DASATINIB
     Indication: Product used for unknown indication

REACTIONS (6)
  - Asthenia [Unknown]
  - Nausea [Recovering/Resolving]
  - White blood cell count increased [Not Recovered/Not Resolved]
  - Visual impairment [Unknown]
  - Intentional product misuse [Unknown]
  - Drug interaction [Unknown]

NARRATIVE: CASE EVENT DATE: 20250513
